FAERS Safety Report 4289025-7 (Version None)
Quarter: 2004Q1

REPORT INFORMATION
  Report Type: 
  Country: None (occurrence: None)
  Receive Date: 20040204
  Receipt Date: 20030107
  Transmission Date: 20041129
  Serious: Yes (Hospitalization)
  Sender: FDA-Public Use
  Company Number: 03P-163-0207889-00

PATIENT
  Age: 26 Year
  Sex: Male

DRUGS (2)
  1. DEPACON [Suspect]
     Indication: CONVULSION
     Dosage: 1000 MG, 1 IN 1 D; 500 MG, 1 IN 1 D
     Dates: start: 20030103, end: 20030103
  2. DEPACON [Suspect]
     Indication: CONVULSION
     Dosage: 1000 MG, 1 IN 1 D; 500 MG, 1 IN 1 D
     Dates: start: 20030102

REACTIONS (1)
  - AMMONIA INCREASED [None]
